FAERS Safety Report 5033523-5 (Version None)
Quarter: 2006Q2

REPORT INFORMATION
  Report Type: 
  Country: None (occurrence: None)
  Receive Date: 20060623
  Receipt Date: 20060612
  Transmission Date: 20061013
  Serious: Yes (Death, Other)
  Sender: FDA-Public Use
  Company Number: GB-JNJFOC-20060603266

PATIENT
  Age: 48 Year
  Sex: Male

DRUGS (5)
  1. REMICADE [Suspect]
     Dosage: BETWEEN 3-5 MG/KG GIVEN AT 8-10 WEEK INTERVAL
  2. REMICADE [Suspect]
     Dosage: BETWEEN 3 AND 5 MG/KG GIVEN AT 8-10 WEEK INTERVAL
  3. REMICADE [Suspect]
     Dosage: 6 WEEK
  4. REMICADE [Suspect]
     Dosage: 2 WEEK
  5. REMICADE [Suspect]
     Indication: PSORIASIS
     Dosage: 0 WEEK

REACTIONS (1)
  - METASTATIC RENAL CELL CARCINOMA [None]
